FAERS Safety Report 8536666-4 (Version None)
Quarter: 2012Q3

REPORT INFORMATION
  Report Type: 
  Country: None (occurrence: None)
  Receive Date: 20120725
  Receipt Date: 20120716
  Transmission Date: 20120928
  Serious: Yes (Hospitalization)
  Sender: FDA-Public Use
  Company Number: FR-009507513-1207FRA004201

PATIENT

DRUGS (3)
  1. DECAPEPTYL (TRIPTORELIN ACETATE) [Suspect]
     Indication: OVULATION INDUCTION
     Dosage: 0.05 MG, QD
     Dates: start: 20110526, end: 20110603
  2. PUREGON [Suspect]
     Indication: OVULATION INDUCTION
     Dosage: 150 IU, QD
     Route: 058
     Dates: start: 20110526, end: 20110603
  3. GONADOTROPHINE CHORIONIQUE ENDO 5000 UI/1ML [Suspect]
     Indication: PRODUCT USED FOR UNKNOWN INDICATION
     Dosage: 5000 IU, ONCE
     Route: 030
     Dates: start: 20110604, end: 20110604

REACTIONS (2)
  - ABDOMINAL CAVITY DRAINAGE [None]
  - OVARIAN HYPERSTIMULATION SYNDROME [None]
